FAERS Safety Report 9118786 (Version 2)
Quarter: 2013Q1

REPORT INFORMATION
  Report Type: Spontaneous
  Country: TR (occurrence: TR)
  Receive Date: 20130226
  Receipt Date: 20130311
  Transmission Date: 20140127
  Serious: Yes (Hospitalization, Other)
  Sender: FDA-Public Use
  Company Number: PHHY2013TR018354

PATIENT
  Age: 64 Year
  Sex: Female

DRUGS (2)
  1. ACLASTA [Suspect]
     Indication: OSTEOPOROSIS
     Dosage: UNK
     Route: 042
     Dates: start: 20130221
  2. COUMADIN [Concomitant]
     Dosage: UNK UKN, UNK

REACTIONS (3)
  - Cardiac disorder [Unknown]
  - Tremor [Unknown]
  - Pyrexia [Unknown]
